FAERS Safety Report 6974870-7 (Version None)
Quarter: 2010Q3

REPORT INFORMATION
  Report Type: 
  Country: None (occurrence: None)
  Receive Date: 20100909
  Receipt Date: 20100901
  Transmission Date: 20110219
  Serious: Yes (Hospitalization)
  Sender: FDA-Public Use
  Company Number: JP-ELI_LILLY_AND_COMPANY-JP201009000419

PATIENT
  Age: 57 Year
  Sex: Male
  Weight: 55 kg

DRUGS (2)
  1. OLANZAPINE [Suspect]
     Indication: SCHIZOPHRENIA, DISORGANISED TYPE
     Dosage: 20 MG, DAILY (1/D)
     Route: 048
     Dates: start: 20100524, end: 20100715
  2. VALPROATE SODIUM [Concomitant]
     Dosage: 1200 MG, DAILY (1/D)
     Route: 048

REACTIONS (1)
  - SCHIZOPHRENIA [None]
